FAERS Safety Report 23994654 (Version 1)
Quarter: 2024Q2

REPORT INFORMATION
  Report Type: Spontaneous
  Country: US (occurrence: None)
  Receive Date: 20240619
  Receipt Date: 20240619
  Transmission Date: 20240715
  Serious: Yes (Death)
  Sender: FDA-Public Use
  Company Number: None

PATIENT
  Age: 76 Year
  Sex: Male
  Weight: 105.8 kg

DRUGS (1)
  1. ELIQUIS [Suspect]
     Active Substance: APIXABAN
     Indication: Atrial flutter
     Dosage: 5 MG TWICE A DAY ORAL
     Route: 048
     Dates: start: 20240506, end: 20240530

REACTIONS (2)
  - Unresponsive to stimuli [None]
  - Foaming at mouth [None]

NARRATIVE: CASE EVENT DATE: 20240530
